FAERS Safety Report 17958508 (Version 1)
Quarter: 2020Q2

REPORT INFORMATION
  Report Type: Spontaneous
  Country: DE (occurrence: DE)
  Receive Date: 20200629
  Receipt Date: 20200629
  Transmission Date: 20200714
  Serious: Yes (Other)
  Sender: FDA-Public Use
  Company Number: DE-GALDERMA-DE2020030063

PATIENT
  Age: 65 Year
  Sex: Male

DRUGS (1)
  1. ORAYCEA [Suspect]
     Active Substance: DOXYCYCLINE
     Indication: ROSACEA
     Route: 065

REACTIONS (2)
  - Hypertensive crisis [Unknown]
  - Back pain [Unknown]

NARRATIVE: CASE EVENT DATE: 202002
